FAERS Safety Report 18538938 (Version 8)
Quarter: 2022Q1

REPORT INFORMATION
  Report Type: Report from Study
  Country: CO (occurrence: CO)
  Receive Date: 20201124
  Receipt Date: 20220222
  Transmission Date: 20220423
  Serious: Yes (Hospitalization)
  Sender: FDA-Public Use
  Company Number: CO-JNJFOC-20201126817

PATIENT
  Age: 42 Year
  Sex: Male
  Weight: 84 kg

DRUGS (8)
  1. INVEGA SUSTENNA [Suspect]
     Active Substance: PALIPERIDONE PALMITATE
     Indication: Schizophrenia
     Route: 030
     Dates: start: 201911
  2. INVEGA SUSTENNA [Suspect]
     Active Substance: PALIPERIDONE PALMITATE
     Route: 030
     Dates: start: 20201117
  3. INVEGA SUSTENNA [Suspect]
     Active Substance: PALIPERIDONE PALMITATE
     Route: 030
  4. CLOZAPINE [Concomitant]
     Active Substance: CLOZAPINE
  5. LEVOMEPROMAZINE [Concomitant]
     Active Substance: LEVOMEPROMAZINE
  6. CLONAZEPAM [Concomitant]
     Active Substance: CLONAZEPAM
  7. SERTRALINE [Concomitant]
     Active Substance: SERTRALINE HYDROCHLORIDE
  8. FLUOXETINE [Concomitant]
     Active Substance: FLUOXETINE HYDROCHLORIDE

REACTIONS (17)
  - Hospitalisation [Recovering/Resolving]
  - Seizure [Recovering/Resolving]
  - Weight decreased [Not Recovered/Not Resolved]
  - Insomnia [Recovering/Resolving]
  - Schizophrenia [Not Recovered/Not Resolved]
  - Screaming [Recovering/Resolving]
  - Crying [Not Recovered/Not Resolved]
  - Abnormal behaviour [Not Recovered/Not Resolved]
  - Adverse drug reaction [Unknown]
  - Anxiety [Recovering/Resolving]
  - Dysuria [Unknown]
  - Chest pain [Recovering/Resolving]
  - Agitation [Recovering/Resolving]
  - Fatigue [Recovering/Resolving]
  - Memory impairment [Not Recovered/Not Resolved]
  - Decreased appetite [Not Recovered/Not Resolved]
  - Tachycardia [Not Recovered/Not Resolved]

NARRATIVE: CASE EVENT DATE: 20200101
